FAERS Safety Report 5679317-9 (Version None)
Quarter: 2008Q1

REPORT INFORMATION
  Report Type: 
  Country: None (occurrence: None)
  Receive Date: 20080321
  Receipt Date: 20080306
  Transmission Date: 20080703
  Serious: Yes (Hospitalization)
  Sender: FDA-Public Use
  Company Number: 2008000528

PATIENT
  Age: 67 Year
  Sex: Male

DRUGS (8)
  1. ERLOTINIB(ERLOTINIB HCL) (TABLET) (ERLOTINIB HCL) [Suspect]
     Indication: HEPATIC NEOPLASM MALIGNANT
     Dosage: (100 MG,QD), ORAL
     Route: 048
     Dates: start: 20080205
  2. BEVACIZUMAB(INJECTION FOR INFUSION) [Suspect]
     Dosage: (10 MG/KG,Q2W), INTRAVENOUS
     Route: 042
     Dates: start: 20080123
  3. LEVOTHYROXINE SODIUM [Concomitant]
  4. NADOLOL [Concomitant]
  5. NORVASC [Concomitant]
  6. ALDACTONE [Concomitant]
  7. SLOW-MAG(MAGNESIUM CHLORIDE ANHYDROUS) [Concomitant]
  8. COMPAZINE(PROCHLORPERAZINE EDISYLATE) [Concomitant]

REACTIONS (5)
  - DEHYDRATION [None]
  - FAILURE TO THRIVE [None]
  - HEPATIC CIRRHOSIS [None]
  - HEPATIC FAILURE [None]
  - HYPOTENSION [None]
